FAERS Safety Report 13006318 (Version 1)
Quarter: 2016Q4

REPORT INFORMATION
  Report Type: Spontaneous
  Country: US (occurrence: US)
  Receive Date: 20161207
  Receipt Date: 20161207
  Transmission Date: 20170207
  Serious: Yes (Other)
  Sender: FDA-Public Use
  Company Number: US-CELGENEUS-USA-2016117733

PATIENT

DRUGS (4)
  1. VIDAZA [Suspect]
     Active Substance: AZACITIDINE
     Indication: ACUTE MYELOID LEUKAEMIA
  2. RIGOSERTIB [Suspect]
     Active Substance: RIGOSERTIB
     Indication: MYELODYSPLASTIC SYNDROME
     Route: 041
  3. RIGOSERTIB [Suspect]
     Active Substance: RIGOSERTIB
     Indication: ACUTE MYELOID LEUKAEMIA
  4. VIDAZA [Suspect]
     Active Substance: AZACITIDINE
     Indication: MYELODYSPLASTIC SYNDROME
     Route: 065

REACTIONS (39)
  - Neutropenia [Unknown]
  - Pollakiuria [Unknown]
  - Rash [Unknown]
  - Anaemia [Unknown]
  - Hypotension [Unknown]
  - Upper respiratory tract infection [Unknown]
  - Cough [Unknown]
  - Decreased appetite [Unknown]
  - Fatigue [Unknown]
  - Headache [Unknown]
  - Fall [Unknown]
  - Contusion [Unknown]
  - Pain [Unknown]
  - Haematuria [Unknown]
  - Dysphagia [Unknown]
  - Gingival bleeding [Unknown]
  - Dizziness [Unknown]
  - Cystitis [Unknown]
  - Dyspnoea [Unknown]
  - Hypomagnesaemia [Unknown]
  - Vomiting [Unknown]
  - Pneumonia [Unknown]
  - Acute myeloid leukaemia [Unknown]
  - Thrombocytopenia [Unknown]
  - Urinary tract infection [Unknown]
  - Arthralgia [Unknown]
  - Epistaxis [Unknown]
  - Nausea [Unknown]
  - Pyrexia [Unknown]
  - Dysuria [Unknown]
  - Back pain [Unknown]
  - Sepsis [Unknown]
  - Pain in extremity [Unknown]
  - Constipation [Unknown]
  - Febrile neutropenia [Unknown]
  - Diarrhoea [Unknown]
  - Hypokalaemia [Unknown]
  - Oedema peripheral [Unknown]
  - Abdominal pain [Unknown]
